FAERS Safety Report 6643194-X (Version None)
Quarter: 2010Q1

REPORT INFORMATION
  Report Type: 
  Country: None (occurrence: None)
  Receive Date: 20100319
  Receipt Date: 20100315
  Transmission Date: 20100710
  Serious: Yes (Life-Threatening, Hospitalization, Other)
  Sender: FDA-Public Use
  Company Number: PHHY2010DE08372

PATIENT
  Sex: Male
  Weight: 89 kg

DRUGS (8)
  1. ALISKIREN ALI+ [Suspect]
     Indication: HYPERTENSION
     Dosage: UNK
     Dates: start: 20090123, end: 20090628
  2. ARICEPT [Concomitant]
     Indication: DEMENTIA
     Dosage: 10 MG/DAY
     Route: 048
     Dates: start: 20070506, end: 20090628
  3. CARMEN [Concomitant]
     Indication: HYPERTENSION
     Dosage: 20 MG/DAY
     Route: 048
     Dates: start: 20051230, end: 20090628
  4. KARVEZIDE [Concomitant]
     Indication: HYPERTENSION
     Dosage: 300 MG/DAY
     Route: 048
     Dates: start: 20030316, end: 20090628
  5. ALLOPURINOL W/BENZBROMARONE [Concomitant]
     Indication: HYPERURICAEMIA
     Dosage: 100 MG/DAY
     Route: 048
     Dates: start: 20090313, end: 20090628
  6. DIURETICS [Concomitant]
     Dosage: UNK
     Dates: end: 20090628
  7. ACE INHIBITOR NOS [Concomitant]
     Dosage: UNK
     Dates: start: 20090628
  8. ANTICOAGULANTS [Concomitant]

REACTIONS (3)
  - DYSPNOEA [None]
  - HYPERURICAEMIA [None]
  - PULMONARY EMBOLISM [None]
